FAERS Safety Report 7043734-5 (Version None)
Quarter: 2010Q4

REPORT INFORMATION
  Report Type: 
  Country: None (occurrence: None)
  Receive Date: 20101013
  Receipt Date: 20100924
  Transmission Date: 20110411
  Serious: No
  Sender: FDA-Public Use
  Company Number: US-ROXANE LABORATORIES, INC.-2010-RO-01117RO

PATIENT
  Sex: Female

DRUGS (1)
  1. BUTORPHANOL TARTRATE [Suspect]
     Indication: HEADACHE
     Route: 045

REACTIONS (4)
  - DRUG INEFFECTIVE [None]
  - PRODUCT ODOUR ABNORMAL [None]
  - PRODUCT PACKAGING QUANTITY ISSUE [None]
  - PRODUCT TASTE ABNORMAL [None]
